FAERS Safety Report 5109006-0 (Version None)
Quarter: 2006Q3

REPORT INFORMATION
  Report Type: 
  Country: None (occurrence: None)
  Receive Date: 20060918
  Receipt Date: 20060830
  Transmission Date: 20061208
  Serious: Yes (Hospitalization)
  Sender: FDA-Public Use
  Company Number: US200606003109

PATIENT
  Age: 85 Year
  Sex: Female
  Weight: 50.8 kg

DRUGS (9)
  1. FORTEO [Suspect]
     Indication: OSTEOPOROSIS
     Dates: start: 20060101
  2. FORTEO PEN (FORTEO PEN) [Concomitant]
  3. CARDIZEM [Concomitant]
  4. DITROPAN [Concomitant]
  5. SYNTHROID [Concomitant]
  6. CALCIUM (CALCIUM) [Concomitant]
  7. CENTRUM (MINERALS NOS, VITAMINS NOS) [Concomitant]
  8. CYANOCOBALAMIN [Concomitant]
  9. PLAVIX [Concomitant]

REACTIONS (5)
  - ASTHENIA [None]
  - DIVERTICULITIS [None]
  - GASTROINTESTINAL HAEMORRHAGE [None]
  - PHARMACEUTICAL PRODUCT COMPLAINT [None]
  - RECTAL HAEMORRHAGE [None]
